FAERS Safety Report 11097931 (Version 2)
Quarter: 2016Q3

REPORT INFORMATION
  Report Type: Spontaneous
  Country: RU (occurrence: RU)
  Receive Date: 20150507
  Receipt Date: 20160825
  Transmission Date: 20161109
  Serious: Yes (Other)
  Sender: FDA-Public Use
  Company Number: RU-BAYER-2015-190624

PATIENT
  Age: 0 Day
  Sex: Female
  Weight: 2.31 kg

DRUGS (1)
  1. YAZ [Suspect]
     Active Substance: DROSPIRENONE\ETHINYL ESTRADIOL
     Route: 064

REACTIONS (5)
  - Low birth weight baby [None]
  - Premature baby [None]
  - Foetal exposure during pregnancy [None]
  - Jaundice [Recovered/Resolved]
  - Blood bilirubin increased [Recovered/Resolved]

NARRATIVE: CASE EVENT DATE: 20130610
